FAERS Safety Report 12847372 (Version 1)
Quarter: 2016Q4

REPORT INFORMATION
  Report Type: Spontaneous
  Country: US (occurrence: US)
  Receive Date: 20161014
  Receipt Date: 20161014
  Transmission Date: 20170207
  Serious: Yes (Other)
  Sender: FDA-Public Use
  Company Number: None

PATIENT
  Age: 83 Year
  Sex: Female
  Weight: 65.77 kg

DRUGS (11)
  1. VITAMIN D3 [Concomitant]
     Active Substance: CHOLECALCIFEROL
  2. BERBERINE [Concomitant]
     Active Substance: BERBERINE
  3. ELIQUIS [Suspect]
     Active Substance: APIXABAN
     Indication: CARDIAC DISORDER
     Dosage: ?          QUANTITY:I WKLET;?
     Route: 048
     Dates: start: 20160126, end: 20160212
  4. METOPROLOL ER SUCCINATE [Concomitant]
     Active Substance: METOPROLOL SUCCINATE
  5. VISION ESST [Concomitant]
  6. BROMELIN [Concomitant]
     Active Substance: UNSPECIFIED INGREDIENT
  7. CLOPIDOGREL [Suspect]
     Active Substance: CLOPIDOGREL BISULFATE
  8. VENLAFAXINE ER [Concomitant]
     Active Substance: VENLAFAXINE HYDROCHLORIDE
  9. FISH OIL [Concomitant]
     Active Substance: FISH OIL
  10. VITAMIN B12 [Concomitant]
     Active Substance: CYANOCOBALAMIN
  11. MULTIVITAMIN [Concomitant]
     Active Substance: VITAMINS

REACTIONS (3)
  - Peripheral swelling [None]
  - Arthralgia [None]
  - Pain in extremity [None]

NARRATIVE: CASE EVENT DATE: 20160208
